FAERS Safety Report 21249536 (Version 5)
Quarter: 2022Q3

REPORT INFORMATION
  Report Type: Report from Study
  Country: IT (occurrence: IT)
  Receive Date: 20220824
  Receipt Date: 20220926
  Transmission Date: 20221027
  Serious: Yes (Hospitalization, Other)
  Sender: FDA-Public Use
  Company Number: IT-BRISTOL-MYERS SQUIBB COMPANY-2022-092516

PATIENT
  Age: 67 Year
  Sex: Male
  Weight: 95 kg

DRUGS (15)
  1. PLACEBO [Suspect]
     Active Substance: UNSPECIFIED INGREDIENT
     Indication: Prostate cancer
     Dosage: PRIOR TO THE EVENT ONSET, THE PATIENT RECEIVED HIS MOST RECENT DOSE ON 11-JUL-2022.?ACTION TAKEN: DO
     Route: 042
     Dates: start: 20220527
  2. DOCETAXEL [Suspect]
     Active Substance: DOCETAXEL
     Indication: Prostate cancer
     Dosage: PRIOR TO THE EVENT ONSET, THE PATIENT RECEIVED HIS MOST RECENT DOSE ON 11-JUL-2022.?ACTION TAKEN: DO
     Route: 065
     Dates: start: 20220527
  3. PREDNISONE [Concomitant]
     Active Substance: PREDNISONE
     Indication: Prostate cancer
     Dosage: PRIOR TO THE EVENT ONSET, THE PATIENT RECEIVED HIS MOST RECENT DOSE ON 28-AUG-2022.?ACTION TAKEN: DO
     Route: 065
     Dates: start: 20220527
  4. CERNEVIT [Concomitant]
     Active Substance: VITAMINS
     Indication: Fatigue
     Dosage: 1 DF= 1 UNIT NOS
     Route: 042
     Dates: start: 20220805, end: 20220805
  5. OLMESARTAN [Concomitant]
     Active Substance: OLMESARTAN
     Indication: Product used for unknown indication
     Dosage: 1 DF= 1 UNIT NOS?ONGOING
     Route: 048
  6. DEXAMETHASONE [Concomitant]
     Active Substance: DEXAMETHASONE
     Indication: Fatigue
     Dosage: 1 DF= 4 UNITS NOS
     Route: 042
     Dates: start: 20220805, end: 20220805
  7. AMLODIPINE BESYLATE [Concomitant]
     Active Substance: AMLODIPINE BESYLATE
     Indication: Product used for unknown indication
     Dosage: 1 DF= 1 UNIT NOS?ONGOING
     Route: 048
  8. CHOLECALCIFEROL [Concomitant]
     Active Substance: CHOLECALCIFEROL
     Indication: Prophylaxis
     Dosage: ONGOING
     Route: 048
  9. LANSOPRAZOLE [Concomitant]
     Active Substance: LANSOPRAZOLE
     Indication: Prophylaxis
     Dosage: ONGOING
     Route: 048
     Dates: start: 20220527
  10. ALLOPURINOL SODIUM [Concomitant]
     Active Substance: ALLOPURINOL SODIUM
     Indication: Prophylaxis
     Dosage: ONGOING
     Route: 048
  11. SODIUM BICARBONATE [Concomitant]
     Active Substance: SODIUM BICARBONATE
     Indication: Prophylaxis
     Dosage: 1DF= 3 UNITS NOS ?ONGOING
     Route: 061
     Dates: start: 20220617
  12. INSULIN HUMAN [Concomitant]
     Active Substance: INSULIN HUMAN
     Indication: Diabetes mellitus
     Dosage: ONGOING
     Route: 058
     Dates: start: 202208
  13. SODIUM CHLORIDE [Concomitant]
     Active Substance: SODIUM CHLORIDE
     Indication: Fatigue
     Route: 042
     Dates: start: 20220805, end: 20220805
  14. MAGNESIUM SULFATE [MAGNESIUM SULFATE HEPTAHYDRATE] [Concomitant]
     Indication: Fatigue
     Dosage: 1 DF= 1 UNIT NOS
     Route: 042
     Dates: start: 20220805, end: 20220805
  15. LEVOFLOXACIN HEMIHYDRATE [Concomitant]
     Active Substance: LEVOFLOXACIN
     Indication: Cough
     Route: 048
     Dates: start: 20220729, end: 20220805

REACTIONS (1)
  - Pulmonary embolism [Not Recovered/Not Resolved]

NARRATIVE: CASE EVENT DATE: 20220817
